FAERS Safety Report 20905897 (Version 1)
Quarter: 2022Q2

REPORT INFORMATION
  Report Type: Spontaneous
  Country: US (occurrence: US)
  Receive Date: 20220602
  Receipt Date: 20220602
  Transmission Date: 20220721
  Serious: No
  Sender: FDA-Public Use
  Company Number: US-009507513-2205USA001755

PATIENT
  Age: 65 Year
  Sex: Female

DRUGS (1)
  1. KEYTRUDA [Suspect]
     Active Substance: PEMBROLIZUMAB
     Indication: Squamous cell carcinoma of the vulva
     Dosage: (200 MG) ONCE EVERY 3 WEEKS
     Route: 042

REACTIONS (4)
  - Mucosal inflammation [Unknown]
  - Diarrhoea [Unknown]
  - Rash [Unknown]
  - Product use in unapproved indication [Unknown]
